FAERS Safety Report 6745547-8 (Version None)
Quarter: 2010Q2

REPORT INFORMATION
  Report Type: 
  Country: None (occurrence: None)
  Receive Date: 20100528
  Receipt Date: 20100513
  Transmission Date: 20101027
  Serious: Yes (Death)
  Sender: FDA-Public Use
  Company Number: AU-CUBIST-2010S1000255

PATIENT
  Sex: Male

DRUGS (1)
  1. CUBICIN [Suspect]
     Indication: ENTEROCOCCAL INFECTION
     Route: 042

REACTIONS (2)
  - ANTIMICROBIAL SUSCEPTIBILITY TEST RESISTANT [None]
  - DEATH [None]
